FAERS Safety Report 8013924-3 (Version None)
Quarter: 2011Q4

REPORT INFORMATION
  Report Type: 
  Country: None (occurrence: None)
  Receive Date: 20111229
  Receipt Date: 20111220
  Transmission Date: 20120403
  Serious: Yes (Other)
  Sender: FDA-Public Use
  Company Number: US-ROCHE-797368

PATIENT
  Sex: Male
  Weight: 63.56 kg

DRUGS (1)
  1. ACCUTANE [Suspect]
     Indication: ACNE
     Dosage: 40 MG TO 80 MG
     Route: 065
     Dates: start: 19941122, end: 19950501

REACTIONS (3)
  - FISTULA [None]
  - COLITIS ULCERATIVE [None]
  - DEPRESSION [None]
